FAERS Safety Report 24980349 (Version 1)
Quarter: 2025Q1

REPORT INFORMATION
  Report Type: Spontaneous
  Country: US (occurrence: None)
  Receive Date: 20250214
  Receipt Date: 20250214
  Transmission Date: 20250409
  Serious: Yes (Disabling)
  Sender: FDA-CTU
  Company Number: None

PATIENT
  Age: 72 Year
  Sex: Male
  Weight: 91.17 kg

DRUGS (1)
  1. LEQVIO [Suspect]
     Active Substance: INCLISIRAN SODIUM
     Indication: Blood cholesterol abnormal
     Dates: start: 20240507, end: 20240821

REACTIONS (4)
  - Arthralgia [None]
  - Dyspnoea [None]
  - Gait disturbance [None]
  - Muscle spasms [None]

NARRATIVE: CASE EVENT DATE: 20240609
